FAERS Safety Report 6269722-4 (Version None)
Quarter: 2009Q3

REPORT INFORMATION
  Report Type: 
  Country: None (occurrence: None)
  Receive Date: 20090716
  Receipt Date: 20090709
  Transmission Date: 20100115
  Serious: Yes (Other)
  Sender: FDA-Public Use
  Company Number: AN-ELI_LILLY_AND_COMPANY-AN200907002259

PATIENT
  Age: 50 Year
  Sex: Male

DRUGS (1)
  1. TADALAFIL [Suspect]
     Indication: ERECTILE DYSFUNCTION
     Dosage: 20 MG, 2/W
     Route: 048
     Dates: start: 20081101

REACTIONS (1)
  - PULMONARY HYPERTENSION [None]
